FAERS Safety Report 11782611 (Version 2)
Quarter: 2016Q1

REPORT INFORMATION
  Report Type: Spontaneous
  Country: DE (occurrence: DE)
  Receive Date: 20151127
  Receipt Date: 20160226
  Transmission Date: 20160525
  Serious: Yes (Death, Life-Threatening, Other)
  Sender: FDA-Public Use
  Company Number: DE-ASTRAZENECA-2015SF18138

PATIENT
  Age: 27814 Day
  Sex: Female
  Weight: 91 kg

DRUGS (8)
  1. MARCUMAR [Suspect]
     Active Substance: PHENPROCOUMON
     Dosage: GOOD ADJUSTED INR 2.1-2.7
     Route: 048
  2. TADALAFIL [Suspect]
     Active Substance: TADALAFIL
     Route: 048
  3. FORXIGA [Suspect]
     Active Substance: DAPAGLIFLOZIN
     Indication: DIABETES MELLITUS
     Route: 048
     Dates: start: 20150410, end: 20150418
  4. TILIDIN [Concomitant]
     Active Substance: NALOXONE HYDROCHLORIDE\TILIDINE HYDROCHLORIDE
  5. CANDESARTAN [Concomitant]
     Active Substance: CANDESARTAN
     Route: 048
  6. LYRICA [Concomitant]
     Active Substance: PREGABALIN
  7. XIPAMIDE [Suspect]
     Active Substance: XIPAMIDE
     Route: 048
  8. PREDNISOLON [Concomitant]
     Active Substance: PREDNISOLONE
     Route: 048

REACTIONS (2)
  - Internal haemorrhage [Unknown]
  - Cerebral haemorrhage [Fatal]

NARRATIVE: CASE EVENT DATE: 20150418
